FAERS Safety Report 25153459 (Version 1)
Quarter: 2025Q2

REPORT INFORMATION
  Report Type: Spontaneous
  Country: FR (occurrence: FR)
  Receive Date: 20250403
  Receipt Date: 20250403
  Transmission Date: 20250717
  Serious: Yes (Hospitalization)
  Sender: TEVA
  Company Number: None

PATIENT
  Age: 74 Year
  Sex: Male
  Weight: 85 kg

DRUGS (2)
  1. CIPROFLOXACIN [Suspect]
     Active Substance: CIPROFLOXACIN
     Indication: Device related infection
     Dosage: 750 MG X 2
     Route: 048
     Dates: start: 20241121, end: 20250213
  2. ERTAPENEM [Suspect]
     Active Substance: ERTAPENEM
     Indication: Device related infection
     Dosage: 1GX2/DAY,
     Route: 042
     Dates: start: 20250116, end: 20250128

REACTIONS (2)
  - Hallucination [Recovered/Resolved]
  - Confusional state [Recovered/Resolved]

NARRATIVE: CASE EVENT DATE: 20250120
